FAERS Safety Report 9306711 (Version 2)
Quarter: 2013Q2

REPORT INFORMATION
  Report Type: Spontaneous
  Country: US (occurrence: US)
  Receive Date: 20130523
  Receipt Date: 20130605
  Transmission Date: 20140414
  Serious: No
  Sender: FDA-Public Use
  Company Number: US-ALEXION-A201300972

PATIENT
  Age: 19 Year
  Sex: Male
  Weight: 65.8 kg

DRUGS (9)
  1. SOLIRIS 300MG [Suspect]
     Indication: HAEMOLYTIC URAEMIC SYNDROME
     Dosage: 900 MG, QW
     Route: 042
     Dates: start: 20130415
  2. SOLIRIS 300MG [Suspect]
     Dosage: 1200 MG QOW
     Dates: start: 20130521
  3. SYNTHROID [Concomitant]
     Dosage: 112 MCG, QD
     Dates: start: 2003
  4. AVAPRO [Concomitant]
     Dosage: 75 MG, QD
     Dates: start: 2011
  5. ZEMPLAR [Concomitant]
     Dosage: 2 MCG, QD
     Dates: start: 2012
  6. IRON [Concomitant]
     Dosage: 325 MG, QD
  7. CENTRUM [Concomitant]
     Dosage: 1 DF, QD
  8. ULORIC [Concomitant]
     Dosage: 40 MG, QD
     Dates: start: 2011
  9. PROCRIT [Concomitant]
     Dosage: 7500 CC EVERY 14 DAYS

REACTIONS (11)
  - Halo vision [Recovered/Resolved]
  - Frequent bowel movements [Recovered/Resolved]
  - Feeling abnormal [Recovered/Resolved]
  - Confusional state [Recovered/Resolved]
  - Fall [Recovered/Resolved]
  - Excoriation [Recovered/Resolved]
  - Headache [Recovered/Resolved]
  - Vision blurred [Not Recovered/Not Resolved]
  - Nausea [Not Recovered/Not Resolved]
  - Malaise [Recovered/Resolved]
  - Drug dose omission [Unknown]
